FAERS Safety Report 5074090-X (Version None)
Quarter: 2006Q3

REPORT INFORMATION
  Report Type: 
  Country: None (occurrence: None)
  Receive Date: 20060808
  Receipt Date: 20060224
  Transmission Date: 20061208
  Serious: No
  Sender: FDA-Public Use
  Company Number: US-AMGEN-US170480

PATIENT
  Age: 76 Year
  Sex: Female
  Weight: 54.5 kg

DRUGS (2)
  1. PROCRIT [Suspect]
     Indication: ANAEMIA OF MALIGNANT DISEASE
     Dates: start: 20050101
  2. VELCADE [Concomitant]

REACTIONS (1)
  - PULMONARY OEDEMA [None]
